FAERS Safety Report 23882031 (Version 3)
Quarter: 2024Q2

REPORT INFORMATION
  Report Type: Report from Study
  Country: US (occurrence: US)
  Receive Date: 20240521
  Receipt Date: 20240531
  Transmission Date: 20240715
  Serious: No
  Sender: FDA-Public Use
  Company Number: US-ABBVIE-5766022

PATIENT
  Sex: Female
  Weight: 93 kg

DRUGS (5)
  1. REFRESH OPTIVE [Suspect]
     Active Substance: CARBOXYMETHYLCELLULOSE SODIUM\GLYCERIN
     Indication: Dry eye
     Dosage: CMC 5MG/ML GLYCERIN 9MG/ML?2 DROPS IN EACH EYE?2 TO 3 TIMES A DAY?START DATE: 8 MONTHS AGO
     Route: 047
     Dates: start: 202309, end: 20240504
  2. RHAMNUS PURSHIANA BARK EXTRACT [Concomitant]
     Active Substance: RHAMNUS PURSHIANA BARK EXTRACT
     Indication: Laxative supportive care
     Dosage: HERBAL
  3. MAGNESIUM [Concomitant]
     Active Substance: MAGNESIUM
     Indication: Product used for unknown indication
     Dosage: HERBAL
  4. IRON [Concomitant]
     Active Substance: IRON
     Indication: Product used for unknown indication
     Dosage: HERBAL
  5. SODIUM BICARBONATE [Concomitant]
     Active Substance: SODIUM BICARBONATE
     Indication: Product used for unknown indication

REACTIONS (7)
  - Photopsia [Not Recovered/Not Resolved]
  - Eyelid margin crusting [Not Recovered/Not Resolved]
  - Hypersensitivity [Not Recovered/Not Resolved]
  - Eye discharge [Not Recovered/Not Resolved]
  - Visual impairment [Not Recovered/Not Resolved]
  - Vision blurred [Recovered/Resolved]
  - Eye infection [Recovered/Resolved]

NARRATIVE: CASE EVENT DATE: 20230101
